FAERS Safety Report 9112468 (Version 2)
Quarter: 2013Q2

REPORT INFORMATION
  Report Type: Spontaneous
  Country: DK (occurrence: DK)
  Receive Date: 20130211
  Receipt Date: 20130509
  Transmission Date: 20140414
  Serious: Yes (Death, Life-Threatening, Hospitalization, Other)
  Sender: FDA-Public Use
  Company Number: DK-INCYTE CORPORATION-2013IN000256

PATIENT
  Age: 74 Year
  Sex: Female
  Weight: 65 kg

DRUGS (9)
  1. JAKAVI [Suspect]
     Indication: SPLENOMEGALY
     Dosage: 15 MG, QD
     Route: 048
     Dates: start: 20121031
  2. EMPERAL [Concomitant]
     Dosage: UNK
     Dates: start: 20120530
  3. CENTYL MED KALIUMKLORID [Concomitant]
     Dosage: UNK
     Dates: start: 20120530
  4. FURIX [Concomitant]
     Dosage: UNK
     Dates: start: 20120530
  5. DANOL [Concomitant]
     Dosage: UNK
     Dates: start: 20120530
  6. LOSARTAN KALIUM [Concomitant]
     Dosage: UNK
     Dates: start: 20120530
  7. OXYCONTIN [Concomitant]
     Dosage: UNK
     Dates: start: 20120530
  8. SIFROL [Concomitant]
     Dosage: UNK
     Dates: start: 20120530
  9. FUROSEMID [Concomitant]
     Dosage: UNK
     Dates: start: 20120530

REACTIONS (2)
  - Urosepsis [Fatal]
  - Renal impairment [Unknown]
